FAERS Safety Report 15292298 (Version 1)
Quarter: 2018Q3

REPORT INFORMATION
  Report Type: Spontaneous
  Country: DE (occurrence: DE)
  Receive Date: 20180818
  Receipt Date: 20180818
  Transmission Date: 20181010
  Serious: Yes (Hospitalization)
  Sender: FDA-Public Use
  Company Number: DE-AUROBINDO-AUR-APL-2018-041967

PATIENT
  Age: 12 Year
  Sex: Female
  Weight: 54 kg

DRUGS (2)
  1. PHENYTOIN. [Suspect]
     Active Substance: PHENYTOIN
     Indication: PRODUCT USED FOR UNKNOWN INDICATION
     Dosage: 100 MILLIGRAM, DAILY
     Route: 048
     Dates: start: 20180508, end: 20180509
  2. LARIAM [Interacting]
     Active Substance: MEFLOQUINE HYDROCHLORIDE
     Indication: MALARIA PROPHYLAXIS
     Dosage: 250 MILLIGRAM, EVERY WEEK
     Route: 048
     Dates: start: 20180421, end: 20180513

REACTIONS (4)
  - Panic attack [Recovering/Resolving]
  - Drug interaction [Recovering/Resolving]
  - Hallucination, tactile [Recovering/Resolving]
  - Hallucinations, mixed [Recovering/Resolving]

NARRATIVE: CASE EVENT DATE: 20180514
